FAERS Safety Report 9371611 (Version 1)
Quarter: 2013Q2

REPORT INFORMATION
  Report Type: Report from Study
  Country: MX (occurrence: MX)
  Receive Date: 20130627
  Receipt Date: 20130627
  Transmission Date: 20140414
  Serious: Yes (Other)
  Sender: FDA-Public Use
  Company Number: PHHY2013MX065692

PATIENT
  Age: 73 Year
  Sex: Female

DRUGS (5)
  1. CO-DIOVAN [Suspect]
     Indication: HYPERTENSION
     Dosage: 1 DF, (320/12.5MG) DAILY
     Route: 048
     Dates: start: 201201
  2. CO-DIOVAN [Suspect]
     Dosage: 1 DF, (320/12.5MG) DAILY
     Route: 048
  3. LOSARTAN [Concomitant]
     Dosage: 50 MG, UNK
     Dates: end: 2013
  4. METFORMIN [Concomitant]
     Indication: DIABETES MELLITUS
     Dosage: 2 UKN, DAILY
     Dates: start: 2000
  5. METOPROLOL [Concomitant]
     Indication: HYPERTENSION
     Dosage: 2 UKN, DAILY
     Dates: start: 1996

REACTIONS (3)
  - Hemiplegia [Unknown]
  - Blood pressure increased [Unknown]
  - Blood pressure decreased [Recovered/Resolved]
